FAERS Safety Report 18541588 (Version 2)
Quarter: 2021Q1

REPORT INFORMATION
  Report Type: Spontaneous
  Country: US (occurrence: US)
  Receive Date: 20201124
  Receipt Date: 20210304
  Transmission Date: 20210419
  Serious: Yes (Other)
  Sender: FDA-Public Use
  Company Number: US-ASTRAZENECA-2020SF54106

PATIENT
  Sex: Female
  Weight: 72.1 kg

DRUGS (3)
  1. FASENRA [Suspect]
     Active Substance: BENRALIZUMAB
     Indication: ASTHMA
     Route: 058
     Dates: start: 2019
  2. ALBUTEROL NEBULIZER [Concomitant]
     Active Substance: ALBUTEROL
     Indication: ASTHMA
     Dosage: 0.83% AS REQUIRED
     Route: 055
  3. SPIRIVA [Concomitant]
     Active Substance: TIOTROPIUM BROMIDE MONOHYDRATE
     Indication: ASTHMA
     Dosage: 2.5MG AS REQUIRED
     Route: 055

REACTIONS (8)
  - Trigger finger [Not Recovered/Not Resolved]
  - Rash [Recovered/Resolved]
  - Osteochondrosis [Not Recovered/Not Resolved]
  - Joint dislocation [Unknown]
  - Sinusitis [Unknown]
  - Peripheral swelling [Unknown]
  - Pneumonia [Unknown]
  - Dyspnoea [Unknown]
